FAERS Safety Report 8102729-0 (Version None)
Quarter: 2012Q1

REPORT INFORMATION
  Report Type: 
  Country: None (occurrence: None)
  Receive Date: 20120126
  Receipt Date: 20120111
  Transmission Date: 20120608
  Serious: Yes (Life-Threatening, Hospitalization)
  Sender: FDA-Public Use
  Company Number: WAES 1201USA01473

PATIENT
  Age: 73 Year
  Sex: Female

DRUGS (7)
  1. SYNTHROID [Concomitant]
  2. CALCIUM (UNSPECIFIED) [Concomitant]
  3. VITAMIN D (UNSPECIFIED) [Concomitant]
  4. TIAZAC [Concomitant]
  5. FOSAMAX [Suspect]
     Indication: OSTEOPOROSIS
     Dosage: 70 MG/WKY PO
     Route: 048
     Dates: end: 20111122
  6. FOSAMAX [Suspect]
     Indication: OSTEOPOROSIS
     Dosage: 70 MG/WKY PO
     Route: 048
     Dates: start: 19990506, end: 20110201
  7. HORMONES (UNSPECIFIED) [Concomitant]

REACTIONS (2)
  - ACUTE MYOCARDIAL INFARCTION [None]
  - FEMUR FRACTURE [None]
